FAERS Safety Report 23423322 (Version 1)
Quarter: 2024Q1

REPORT INFORMATION
  Report Type: Spontaneous
  Country: US (occurrence: None)
  Receive Date: 20240119
  Receipt Date: 20240119
  Transmission Date: 20240410
  Serious: Yes (Life-Threatening)
  Sender: FDA-Public Use
  Company Number: None

PATIENT
  Age: 42 Year
  Sex: Male
  Weight: 81 kg

DRUGS (4)
  1. AUVELITY [Suspect]
     Active Substance: BUPROPION HYDROCHLORIDE\DEXTROMETHORPHAN HYDROBROMIDE
     Indication: Depression
     Dosage: OTHER QUANTITY : 1 TABLET(S);?FREQUENCY : DAILY;?
     Route: 048
  2. prazosin 1mg [Concomitant]
  3. dextroamphetamine 25mg [Concomitant]
  4. xr dextroamphetamine 5mg instant [Concomitant]

REACTIONS (5)
  - Feeling drunk [None]
  - Vomiting [None]
  - Dizziness [None]
  - Feeling of body temperature change [None]
  - Loss of consciousness [None]

NARRATIVE: CASE EVENT DATE: 20240119
